FAERS Safety Report 5606826-0 (Version None)
Quarter: 2008Q1

REPORT INFORMATION
  Report Type: 
  Country: None (occurrence: None)
  Receive Date: 20080129
  Receipt Date: 20080121
  Transmission Date: 20080703
  Serious: Yes (Other)
  Sender: FDA-Public Use
  Company Number: US-RANBAXY-2006RR-02834

PATIENT

DRUGS (2)
  1. ISOTRETINOIN [Suspect]
     Indication: ACNE
     Dosage: 60 MG, QD
  2. ISOTRETINOIN [Concomitant]
     Dosage: 40 MG, QD

REACTIONS (1)
  - FACE OEDEMA [None]
